FAERS Safety Report 21248634 (Version 1)
Quarter: 2022Q3

REPORT INFORMATION
  Report Type: Spontaneous
  Country: US (occurrence: US)
  Receive Date: 20220824
  Receipt Date: 20220824
  Transmission Date: 20221027
  Serious: Yes (Other)
  Sender: FDA-Public Use
  Company Number: US-PFIZER INC-202201083254

PATIENT
  Age: 72 Year
  Sex: Male
  Weight: 63.5 kg

DRUGS (2)
  1. ZITHROMAX [Suspect]
     Active Substance: AZITHROMYCIN DIHYDRATE
     Indication: Respiratory disorder
     Dosage: 2 DF(2 TABLETS THE 1ST DAY AND THEN 1 TABLET FOR EITHER 4 OR 5 DAYS )
     Route: 048
     Dates: start: 20220822
  2. ZITHROMAX [Suspect]
     Active Substance: AZITHROMYCIN DIHYDRATE
     Dosage: 1 DF(2 TABLETS THE 1ST DAY AND THEN 1 TABLET FOR EITHER 4 OR 5 DAYS )
     Route: 048

REACTIONS (1)
  - Choking [Unknown]

NARRATIVE: CASE EVENT DATE: 20220822
